FAERS Safety Report 6289127-X (Version None)
Quarter: 2009Q3

REPORT INFORMATION
  Report Type: 
  Country: None (occurrence: None)
  Receive Date: 20090728
  Receipt Date: 20090717
  Transmission Date: 20100115
  Serious: Yes (Other)
  Sender: FDA-Public Use
  Company Number: CHPA2009US15492

PATIENT
  Age: 21 Year
  Sex: Female
  Weight: 74.8 kg

DRUGS (1)
  1. EXCEDRIN ES BACK + BODY (NCH)(ACETYLSALICYLIC ACID, ACETAMINOPHEN (PAR [Suspect]
     Indication: BACK PAIN
     Dosage: 2 DF, QD, ORAL
     Route: 048
     Dates: start: 20090713, end: 20090714

REACTIONS (3)
  - AGEUSIA [None]
  - ANOSMIA [None]
  - FEELING ABNORMAL [None]
